FAERS Safety Report 15543840 (Version 2)
Quarter: 2019Q1

REPORT INFORMATION
  Report Type: Spontaneous
  Country: MX (occurrence: MX)
  Receive Date: 20181023
  Receipt Date: 20190218
  Transmission Date: 20190417
  Serious: Yes (Other)
  Sender: FDA-Public Use
  Company Number: PHHY2018MX001018

PATIENT
  Sex: Male
  Weight: 68 kg

DRUGS (1)
  1. GILENYA [Suspect]
     Active Substance: FINGOLIMOD HYDROCHLORIDE
     Indication: MULTIPLE SCLEROSIS
     Dosage: 1 OT, UNK
     Route: 048
     Dates: start: 20170219, end: 20180425

REACTIONS (3)
  - Multiple sclerosis relapse [Unknown]
  - Herpes zoster [Unknown]
  - Movement disorder [Unknown]
